FAERS Safety Report 6014699-X (Version None)
Quarter: 2008Q4

REPORT INFORMATION
  Report Type: 
  Country: None (occurrence: None)
  Receive Date: 20081219
  Receipt Date: 20081217
  Transmission Date: 20090506
  Serious: No
  Sender: FDA-Public Use
  Company Number: US-ASTRAZENECA-2008UW18969

PATIENT
  Age: 46 Year
  Sex: Female
  Weight: 120.7 kg

DRUGS (8)
  1. SEROQUEL [Suspect]
     Indication: DEPRESSION
     Dosage: 100 TO 300 MG
     Route: 048
     Dates: start: 20030901, end: 20080101
  2. SEROQUEL [Suspect]
     Indication: BIPOLAR DISORDER
     Dosage: 100 TO 300 MG
     Route: 048
     Dates: start: 20030901, end: 20080101
  3. GEODON [Concomitant]
     Dates: start: 20080101
  4. LITHIUM [Concomitant]
     Dates: start: 20080101
  5. TRAZODONE HCL [Concomitant]
     Dates: start: 20080101
  6. CELEXA [Concomitant]
     Dosage: 20 TO 40 MG
     Dates: start: 20030401, end: 20041001
  7. CLONAZEPAM [Concomitant]
     Dosage: 0.5 MG TO 1 MG
     Dates: start: 20030901, end: 20041201
  8. WELLBUTRIN [Concomitant]
     Dosage: 100 TO 150 MG
     Dates: start: 20031201, end: 20050301

REACTIONS (3)
  - DIABETES MELLITUS [None]
  - HYPERTENSION [None]
  - INTERVERTEBRAL DISC DISORDER [None]
